FAERS Safety Report 5849513-6 (Version None)
Quarter: 2008Q3

REPORT INFORMATION
  Report Type: 
  Country: None (occurrence: None)
  Receive Date: 20080819
  Receipt Date: 20080815
  Transmission Date: 20090109
  Serious: Yes (Life-Threatening, Congenital Anomaly)
  Sender: FDA-Public Use
  Company Number: A0742856A

PATIENT
  Age: 6 Year
  Sex: Male

DRUGS (5)
  1. ARIXTRA [Suspect]
     Indication: HEPARIN-INDUCED THROMBOCYTOPENIA
     Dosage: 12.5MG PER DAY
     Dates: start: 20080701
  2. COUMADIN [Concomitant]
  3. ATENOLOL [Concomitant]
  4. DAPSONE [Concomitant]
  5. ASTHMA MEDICATION [Concomitant]

REACTIONS (1)
  - VOLUME BLOOD DECREASED [None]
